FAERS Safety Report 15037124 (Version 2)
Quarter: 2018Q3

REPORT INFORMATION
  Report Type: Spontaneous
  Country: JP (occurrence: JP)
  Receive Date: 20180620
  Receipt Date: 20180924
  Transmission Date: 20181010
  Serious: Yes (Other)
  Sender: FDA-Public Use
  Company Number: JP-PFIZER INC-2018243987

PATIENT
  Age: 54 Year
  Sex: Male

DRUGS (1)
  1. RHEUMATREX [Suspect]
     Active Substance: METHOTREXATE SODIUM
     Dosage: 8 MG, WEEKLY (4 MG EACH ON TUESDAY/WEDNESDAY)
     Route: 048

REACTIONS (2)
  - Cardiac failure [Unknown]
  - Angina pectoris [Unknown]
